FAERS Safety Report 7033375-8 (Version None)
Quarter: 2010Q4

REPORT INFORMATION
  Report Type: 
  Country: None (occurrence: None)
  Receive Date: 20101007
  Receipt Date: 20100927
  Transmission Date: 20110411
  Serious: Yes (Hospitalization)
  Sender: FDA-Public Use
  Company Number: US-MPIJNJ-2010-04984

PATIENT
  Age: 69 Year
  Sex: Female
  Weight: 63.492 kg

DRUGS (1)
  1. VELCADE [Suspect]
     Indication: MULTIPLE MYELOMA
     Dosage: 2.2 MG, CYCLIC
     Route: 042
     Dates: start: 20100518

REACTIONS (4)
  - COUGH [None]
  - DYSPNOEA [None]
  - PLEURITIC PAIN [None]
  - PYREXIA [None]
